FAERS Safety Report 13413671 (Version 2)
Quarter: 2017Q4

REPORT INFORMATION
  Report Type: Spontaneous
  Country: US (occurrence: US)
  Receive Date: 20170406
  Receipt Date: 20171121
  Transmission Date: 20180320
  Serious: No
  Sender: FDA-Public Use
  Company Number: US-JNJFOC-20170312256

PATIENT
  Sex: Male

DRUGS (14)
  1. INVEGA SUSTENNA [Suspect]
     Active Substance: PALIPERIDONE PALMITATE
     Indication: SCHIZOPHRENIFORM DISORDER
     Dosage: IN VARYING DOSES OF 117MG/0.75ML AND 156 MG
     Route: 030
     Dates: start: 20131028, end: 20160223
  2. RISPERDAL [Suspect]
     Active Substance: RISPERIDONE
     Indication: INSOMNIA
     Route: 048
     Dates: start: 20100919, end: 20101115
  3. RISPERDAL [Suspect]
     Active Substance: RISPERIDONE
     Indication: INSOMNIA
     Route: 048
     Dates: start: 20130918, end: 20140804
  4. RISPERDAL [Suspect]
     Active Substance: RISPERIDONE
     Indication: SCHIZOPHRENIFORM DISORDER
     Route: 048
     Dates: start: 20110510, end: 20111028
  5. RISPERIDONE. [Suspect]
     Active Substance: RISPERIDONE
     Indication: SCHIZOPHRENIFORM DISORDER
     Dosage: IN VARYING DOSES OF 2 MG, 3 MG AND 4 MG
     Route: 065
     Dates: start: 20100921, end: 20111028
  6. INVEGA [Suspect]
     Active Substance: PALIPERIDONE
     Indication: SCHIZOPHRENIFORM DISORDER
     Route: 048
     Dates: start: 20130918, end: 20131027
  7. INVEGA SUSTENNA [Suspect]
     Active Substance: PALIPERIDONE PALMITATE
     Indication: INSOMNIA
     Dosage: IN VARYING DOSES OF 117MG/0.75ML AND 156 MG
     Route: 030
     Dates: start: 20131028, end: 20160223
  8. RISPERDAL [Suspect]
     Active Substance: RISPERIDONE
     Indication: SCHIZOPHRENIFORM DISORDER
     Route: 048
     Dates: start: 20130918, end: 20140804
  9. RISPERDAL [Suspect]
     Active Substance: RISPERIDONE
     Indication: SCHIZOPHRENIFORM DISORDER
     Route: 048
     Dates: start: 20100919, end: 20101115
  10. INVEGA TRINZA [Suspect]
     Active Substance: PALIPERIDONE PALMITATE
     Indication: SCHIZOPHRENIFORM DISORDER
     Route: 030
     Dates: start: 20160426, end: 20161115
  11. INVEGA [Suspect]
     Active Substance: PALIPERIDONE
     Indication: INSOMNIA
     Route: 048
     Dates: start: 20130918, end: 20131027
  12. INVEGA TRINZA [Suspect]
     Active Substance: PALIPERIDONE PALMITATE
     Indication: INSOMNIA
     Route: 030
     Dates: start: 20160426, end: 20161115
  13. RISPERDAL [Suspect]
     Active Substance: RISPERIDONE
     Indication: INSOMNIA
     Route: 048
     Dates: start: 20110510, end: 20111028
  14. RISPERIDONE. [Suspect]
     Active Substance: RISPERIDONE
     Indication: INSOMNIA
     Dosage: IN VARYING DOSES OF 2 MG, 3 MG AND 4 MG
     Route: 065
     Dates: start: 20100921, end: 20111028

REACTIONS (2)
  - Gynaecomastia [Unknown]
  - Emotional disorder [Unknown]
